FAERS Safety Report 7440966-9 (Version None)
Quarter: 2011Q2

REPORT INFORMATION
  Report Type: 
  Country: None (occurrence: None)
  Receive Date: 20110427
  Receipt Date: 20110414
  Transmission Date: 20111010
  Serious: Yes (Hospitalization)
  Sender: FDA-Public Use
  Company Number: US-SANOFI-AVENTIS-2011SA017055

PATIENT
  Age: 59 Year
  Sex: Female

DRUGS (3)
  1. METFORMIN [Suspect]
     Route: 048
  2. PIOGLITAZONE [Suspect]
     Route: 048
     Dates: start: 20090701, end: 20100624
  3. GLIMEPIRIDE [Suspect]
     Route: 048
     Dates: start: 20090507

REACTIONS (1)
  - FLUID OVERLOAD [None]
